FAERS Safety Report 9977988 (Version 1)
Quarter: 2014Q1

REPORT INFORMATION
  Report Type: Report from Study
  Country: US (occurrence: US)
  Receive Date: 20140306
  Receipt Date: 20140306
  Transmission Date: 20141002
  Serious: No
  Sender: FDA-Public Use
  Company Number: US-ABBVIE-13P-163-1162033-00

PATIENT
  Age: 31 Year
  Sex: Female

DRUGS (7)
  1. HUMIRA [Suspect]
     Indication: PSORIATIC ARTHROPATHY
     Dates: start: 20120717
  2. INDOCIN [Concomitant]
     Indication: PRODUCT USED FOR UNKNOWN INDICATION
  3. SULFASALAZINE [Concomitant]
     Indication: PRODUCT USED FOR UNKNOWN INDICATION
  4. HYDROXYCHLOROQUINE [Concomitant]
     Indication: PRODUCT USED FOR UNKNOWN INDICATION
     Dosage: 200 MG TIMES ONE ON ODD DAYS
  5. HYDROXYCHLOROQUINE [Concomitant]
     Dosage: 200 MG TIMES TWO ON EVEN DAYS
  6. AMOXICILLIN [Concomitant]
     Indication: ACNE
     Dosage: 5000 MG ONCE IN MORNING AND TWICE IN THE EVENING
  7. PRILOSEC [Concomitant]
     Dosage: DAILY

REACTIONS (4)
  - Injection site extravasation [Unknown]
  - Incorrect dose administered [Unknown]
  - Injection site pain [Unknown]
  - Injection site haemorrhage [Recovered/Resolved]
